FAERS Safety Report 4602070-4 (Version None)
Quarter: 2005Q1

REPORT INFORMATION
  Report Type: 
  Country: None (occurrence: None)
  Receive Date: 20050131
  Receipt Date: 20041004
  Transmission Date: 20050727
  Serious: No
  Sender: FDA-Public Use
  Company Number: 200417618US

PATIENT
  Age: 47 Year
  Sex: Female

DRUGS (1)
  1. KETEK [Suspect]
     Indication: SINUSITIS
     Dosage: 800 MG QD PO
     Route: 048
     Dates: start: 20041002, end: 20041006

REACTIONS (3)
  - ASTHENOPIA [None]
  - DIARRHOEA [None]
  - HEADACHE [None]
